FAERS Safety Report 25368390 (Version 1)
Quarter: 2025Q2

REPORT INFORMATION
  Report Type: Spontaneous
  Country: US (occurrence: None)
  Receive Date: 20250528
  Receipt Date: 20250528
  Transmission Date: 20250717
  Serious: Yes (Hospitalization)
  Sender: FDA-CTU
  Company Number: None

PATIENT
  Age: 70 Year
  Sex: Male
  Weight: 106.4 kg

DRUGS (1)
  1. ALIMTA [Suspect]
     Active Substance: PEMETREXED DISODIUM

REACTIONS (19)
  - Sepsis [None]
  - Radiation oesophagitis [None]
  - Supraventricular extrasystoles [None]
  - Bundle branch block right [None]
  - Platelet count decreased [None]
  - White blood cell count decreased [None]
  - Platelet transfusion [None]
  - Lethargy [None]
  - Disorientation [None]
  - Chest pain [None]
  - Dyspnoea [None]
  - Retching [None]
  - Mental status changes [None]
  - Abdominal tenderness [None]
  - Staphylococcal infection [None]
  - Bacterial infection [None]
  - Culture urine positive [None]
  - Escherichia infection [None]
  - Breakthrough pain [None]

NARRATIVE: CASE EVENT DATE: 20250219
